FAERS Safety Report 11361454 (Version 3)
Quarter: 2015Q3

REPORT INFORMATION
  Report Type: Spontaneous
  Country: JP (occurrence: JP)
  Receive Date: 20150810
  Receipt Date: 20150909
  Transmission Date: 20151125
  Serious: Yes (Hospitalization)
  Sender: FDA-Public Use
  Company Number: JP-GLAXOSMITHKLINE-JP2015JPN094410

PATIENT
  Age: 24 Year
  Sex: Male
  Weight: 58 kg

DRUGS (3)
  1. LIMAS [Concomitant]
     Active Substance: LITHIUM CARBONATE
     Indication: BIPOLAR I DISORDER
     Dosage: 100 MG, QD
     Dates: start: 20140320
  2. LAMICTAL [Suspect]
     Active Substance: LAMOTRIGINE
     Indication: BIPOLAR I DISORDER
     Dosage: 25 MG, QD
     Route: 048
     Dates: start: 20150608, end: 20150623
  3. REFLEX [Concomitant]
     Active Substance: MIRTAZAPINE
     Indication: BIPOLAR I DISORDER
     Dosage: 15 MG, QD
     Dates: start: 20150128

REACTIONS (4)
  - Pyrexia [Recovered/Resolved]
  - Rash [Recovered/Resolved]
  - Headache [Recovered/Resolved]
  - Vomiting [Recovered/Resolved]

NARRATIVE: CASE EVENT DATE: 20150622
